FAERS Safety Report 21513611 (Version 1)
Quarter: 2022Q4

REPORT INFORMATION
  Report Type: Spontaneous
  Country: US (occurrence: US)
  Receive Date: 20221027
  Receipt Date: 20221027
  Transmission Date: 20230113
  Serious: No
  Sender: FDA-Public Use
  Company Number: US-NOVARTISTESTPH-NVSC2022US242134

PATIENT
  Sex: Female

DRUGS (1)
  1. PIQRAY [Suspect]
     Active Substance: ALPELISIB
     Indication: Product used for unknown indication
     Dosage: 300 MG, QD (CAPLET)
     Route: 048
     Dates: start: 20220202, end: 20220510

REACTIONS (1)
  - Creatinine renal clearance increased [Unknown]

NARRATIVE: CASE EVENT DATE: 20220303
